APPROVED DRUG PRODUCT: DIHYDROERGOTAMINE MESYLATE
Active Ingredient: DIHYDROERGOTAMINE MESYLATE
Strength: 1MG/ML
Dosage Form/Route: INJECTABLE;INJECTION
Application: A206621 | Product #001 | TE Code: AP
Applicant: HIKMA PHARMACEUTICALS
Approved: Sep 15, 2017 | RLD: No | RS: Yes | Type: RX